FAERS Safety Report 5795559-6 (Version None)
Quarter: 2008Q2

REPORT INFORMATION
  Report Type: 
  Country: None (occurrence: None)
  Receive Date: 20080630
  Receipt Date: 20080627
  Transmission Date: 20081010
  Serious: Yes (Death, Hospitalization, Other)
  Sender: FDA-Public Use
  Company Number: PHBS2008ES04929

PATIENT
  Age: 65 Year
  Sex: Male

DRUGS (7)
  1. ACENOCOUMAROL [Suspect]
     Indication: ATRIAL FIBRILLATION
  2. MYCOPHENOLIC ACID [Suspect]
     Indication: LIVER TRANSPLANT
  3. CYCLOSPORINE [Suspect]
     Indication: LIVER TRANSPLANT
     Dosage: UNK
     Dates: start: 19960101
  4. PREDNISONE [Suspect]
     Indication: LIVER TRANSPLANT
  5. METHYLPREDNISOLONE [Concomitant]
     Indication: TRANSPLANT REJECTION
  6. CALCIUM CARBONATE [Concomitant]
     Dosage: 12 G/DAY
  7. CALCITRIOL [Concomitant]
     Dosage: 1 UG/DAY
     Route: 048

REACTIONS (26)
  - ANAEMIA [None]
  - ATRIAL FIBRILLATION [None]
  - BLOOD ALBUMIN DECREASED [None]
  - BLOOD PARATHYROID HORMONE INCREASED [None]
  - C-REACTIVE PROTEIN INCREASED [None]
  - CALCIPHYLAXIS [None]
  - CARDIOMYOPATHY [None]
  - ECCHYMOSIS [None]
  - FAT NECROSIS [None]
  - HAEMODIALYSIS [None]
  - HAEMODYNAMIC INSTABILITY [None]
  - HAEMOGLOBIN DECREASED [None]
  - HYPOCALCAEMIA [None]
  - INFECTION [None]
  - NEPHROPATHY TOXIC [None]
  - PAIN OF SKIN [None]
  - PYREXIA [None]
  - RENAL FAILURE ACUTE [None]
  - SEPTIC SHOCK [None]
  - SKIN INFECTION [None]
  - SKIN LESION [None]
  - SKIN NECROSIS [None]
  - THROMBOSIS [None]
  - TRANSPLANT REJECTION [None]
  - VASCULAR CALCIFICATION [None]
  - WHITE BLOOD CELL COUNT DECREASED [None]
